FAERS Safety Report 7057254-5 (Version None)
Quarter: 2010Q4

REPORT INFORMATION
  Report Type: 
  Country: None (occurrence: None)
  Receive Date: 20101022
  Receipt Date: 20101013
  Transmission Date: 20110411
  Serious: Yes (Hospitalization)
  Sender: FDA-Public Use
  Company Number: US-NOVOPROD-316473

PATIENT
  Sex: Female
  Weight: 117.91 kg

DRUGS (1)
  1. PRANDIN [Suspect]
     Indication: TYPE 2 DIABETES MELLITUS
     Dosage: 4 MG, TID
     Route: 048

REACTIONS (1)
  - BREAST CANCER [None]
